FAERS Safety Report 8979332 (Version 2)
Quarter: 2012Q4

REPORT INFORMATION
  Report Type: Report from Study
  Country: DE (occurrence: DE)
  Receive Date: 20121221
  Receipt Date: 20121226
  Transmission Date: 20130627
  Serious: Yes (Hospitalization)
  Sender: FDA-Public Use
  Company Number: DE-ABBOTT-12P-062-0935641-00

PATIENT
  Age: 72 Year
  Sex: Female
  Weight: 85 kg

DRUGS (19)
  1. HUMIRA 40 MG/ 0.8 ML PRE-FILLED SYRINGE [Suspect]
     Indication: RHEUMATOID ARTHRITIS
     Route: 058
     Dates: start: 20110301, end: 20110927
  2. HUMIRA 40 MG/ 0.8 ML PRE-FILLED SYRINGE [Suspect]
     Dates: start: 20120102
  3. METHOTREXATE [Concomitant]
     Indication: RHEUMATOID ARTHRITIS
  4. ANTIINFLAMMATORY DRUG [Concomitant]
     Indication: RHEUMATOID ARTHRITIS
  5. ANALGETIC DRUG [Concomitant]
     Indication: RHEUMATOID ARTHRITIS
  6. GLUCOCORTICOIDS [Concomitant]
     Indication: RHEUMATOID ARTHRITIS
     Dosage: 2.5 mg daily
     Dates: start: 20120102
  7. GLUCOCORTICOIDS [Concomitant]
     Dates: end: 20120102
  8. RAMIPRIL [Concomitant]
     Indication: HYPERTENSION
  9. METOHEXAL [Concomitant]
     Indication: CORONARY ARTERY DISEASE
  10. AMLODIPIN [Concomitant]
     Indication: CORONARY ARTERY DISEASE
  11. ACTOS [Concomitant]
     Indication: DIABETES MELLITUS
  12. LANTUS [Concomitant]
     Indication: DIABETES MELLITUS
  13. VICTOZA [Concomitant]
     Indication: DIABETES MELLITUS
  14. CALCIUM+VITAMIN D3 [Concomitant]
     Indication: OSTEOPOROSIS
  15. INSIDON [Concomitant]
     Indication: MENTAL IMPAIRMENT
  16. HERPHONAL [Concomitant]
     Indication: MENTAL IMPAIRMENT
  17. RESTEX [Concomitant]
     Indication: PRODUCT USED FOR UNKNOWN INDICATION
  18. BERITHYROX [Concomitant]
     Indication: PRODUCT USED FOR UNKNOWN INDICATION
  19. TRAVATAN [Concomitant]
     Indication: PRODUCT USED FOR UNKNOWN INDICATION

REACTIONS (1)
  - Faecal incontinence [Unknown]
